FAERS Safety Report 8241593-6 (Version None)
Quarter: 2012Q1

REPORT INFORMATION
  Report Type: 
  Country: None (occurrence: None)
  Receive Date: 20120328
  Receipt Date: 20120313
  Transmission Date: 20120608
  Serious: Yes (Other)
  Sender: FDA-Public Use
  Company Number: CHPA2012US005092

PATIENT
  Sex: Female

DRUGS (4)
  1. ANTIHYPERTENSIVES [Concomitant]
     Indication: HYPERTENSION
     Dosage: UNK
  2. TYLENOL [Concomitant]
     Dosage: UNK DF, UNK
  3. FIORICET [Concomitant]
     Indication: HEADACHE
     Dosage: UNK
  4. EXCEDRIN TENSION HEADACHE CAPLETS [Suspect]
     Indication: HEADACHE
     Dosage: UNK DF, PRN
     Route: 048
     Dates: start: 20030101

REACTIONS (7)
  - ABDOMINAL PAIN UPPER [None]
  - RESTLESS LEGS SYNDROME [None]
  - INSOMNIA [None]
  - FATIGUE [None]
  - RECTAL HAEMORRHAGE [None]
  - EPISTAXIS [None]
  - RECTAL CANCER [None]
